FAERS Safety Report 24728377 (Version 4)
Quarter: 2025Q2

REPORT INFORMATION
  Report Type: Spontaneous
  Country: US (occurrence: US)
  Receive Date: 20241212
  Receipt Date: 20250619
  Transmission Date: 20250717
  Serious: No
  Sender: IPSEN BIOPHARMACEUTICALS, INC.
  Company Number: US-IPSEN Group, Research and Development-2024-25125

PATIENT
  Age: 41 Year
  Sex: Female
  Weight: 94.8 kg

DRUGS (3)
  1. IQIRVO [Suspect]
     Active Substance: ELAFIBRANOR
     Indication: Primary biliary cholangitis
     Route: 048
     Dates: start: 20241108
  2. OCALIVA [Suspect]
     Active Substance: OBETICHOLIC ACID
     Indication: Primary biliary cholangitis
     Route: 065
  3. URSODIOL [Suspect]
     Active Substance: URSODIOL
     Indication: Primary biliary cholangitis
     Route: 065

REACTIONS (7)
  - Fatigue [Unknown]
  - Pain in jaw [Unknown]
  - Pain [Unknown]
  - Discomfort [Unknown]
  - Abdominal pain [Unknown]
  - Myalgia [Unknown]
  - Abdominal pain upper [Unknown]
